FAERS Safety Report 14147706 (Version 3)
Quarter: 2017Q4

REPORT INFORMATION
  Report Type: Spontaneous
  Country: US (occurrence: US)
  Receive Date: 20171031
  Receipt Date: 20171120
  Transmission Date: 20180321
  Serious: No
  Sender: FDA-Public Use
  Company Number: US-ACTELION-A-NJ2017-161696

PATIENT
  Age: 63 Year
  Sex: Male

DRUGS (6)
  1. TAMSULOSIN [Concomitant]
     Active Substance: TAMSULOSIN
  2. ATENOLOL. [Concomitant]
     Active Substance: ATENOLOL
  3. DILTIAZEM. [Concomitant]
     Active Substance: DILTIAZEM
  4. PRAVASTATIN. [Concomitant]
     Active Substance: PRAVASTATIN
  5. OMEPRAZOLE. [Concomitant]
     Active Substance: OMEPRAZOLE
  6. VALCHLOR [Suspect]
     Active Substance: MECHLORETHAMINE
     Indication: MYCOSIS FUNGOIDES
     Dosage: UNK
     Route: 061
     Dates: start: 20171020

REACTIONS (2)
  - Application site pruritus [Unknown]
  - Application site erythema [Unknown]
